FAERS Safety Report 18447247 (Version 2)
Quarter: 2020Q4

REPORT INFORMATION
  Report Type: Spontaneous
  Country: US (occurrence: US)
  Receive Date: 20201030
  Receipt Date: 20201120
  Transmission Date: 20210114
  Serious: Yes (Other)
  Sender: FDA-Public Use
  Company Number: US-NOVOPROD-697460

PATIENT
  Sex: Female
  Weight: 58.51 kg

DRUGS (2)
  1. TRESIBA [Suspect]
     Active Substance: INSULIN DEGLUDEC
     Indication: TYPE 2 DIABETES MELLITUS
     Dosage: 25 UNITS ONCE IN THE MORNING
     Route: 065
     Dates: start: 2015, end: 201911
  2. NOVOLOG [Suspect]
     Active Substance: INSULIN ASPART
     Indication: TYPE 2 DIABETES MELLITUS
     Dosage: SLIDING SCALE 2-10 UNITS
     Route: 058
     Dates: start: 2015, end: 201911

REACTIONS (6)
  - Condition aggravated [Not Recovered/Not Resolved]
  - Liquid product physical issue [Unknown]
  - Product communication issue [Unknown]
  - Product storage error [Unknown]
  - Blood glucose increased [Not Recovered/Not Resolved]
  - Visual impairment [Not Recovered/Not Resolved]

NARRATIVE: CASE EVENT DATE: 201911
